FAERS Safety Report 5746579-9 (Version None)
Quarter: 2008Q2

REPORT INFORMATION
  Report Type: 
  Country: None (occurrence: None)
  Receive Date: 20080522
  Receipt Date: 20080520
  Transmission Date: 20081010
  Serious: Yes (Hospitalization)
  Sender: FDA-Public Use
  Company Number: US-MERCK-0804USA05138

PATIENT
  Age: 33 Year
  Sex: Female
  Weight: 55 kg

DRUGS (6)
  1. SINGULAIR [Suspect]
     Indication: UPPER RESPIRATORY TRACT INFECTION
     Route: 048
     Dates: start: 20080401, end: 20080401
  2. SINGULAIR [Suspect]
     Indication: HYPERSENSITIVITY
     Route: 048
     Dates: start: 20080401, end: 20080401
  3. ADVAIR DISKUS 100/50 [Concomitant]
     Route: 065
     Dates: start: 20080401, end: 20080401
  4. CEPHALEXIN [Concomitant]
     Indication: LOCALISED INFECTION
     Route: 065
     Dates: start: 20080401, end: 20080401
  5. CEPHALEXIN [Concomitant]
     Indication: PARONYCHIA
     Route: 065
     Dates: start: 20080401, end: 20080401
  6. CLARITIN-D [Concomitant]
     Route: 065
     Dates: start: 20080401, end: 20080401

REACTIONS (7)
  - AGITATION [None]
  - FEELING ABNORMAL [None]
  - INSOMNIA [None]
  - IRRITABILITY [None]
  - PALPITATIONS [None]
  - RESTLESSNESS [None]
  - THINKING ABNORMAL [None]
